FAERS Safety Report 15356414 (Version 1)
Quarter: 2018Q3

REPORT INFORMATION
  Report Type: Spontaneous
  Country: US (occurrence: US)
  Receive Date: 20180906
  Receipt Date: 20180906
  Transmission Date: 20181010
  Serious: No
  Sender: FDA-Public Use
  Company Number: US-FERRINGPH-2017FE05969

PATIENT
  Age: 51 Year
  Sex: Female
  Weight: 65.76 kg

DRUGS (2)
  1. MELATONIN [Concomitant]
     Active Substance: MELATONIN
     Indication: PRODUCT USED FOR UNKNOWN INDICATION
     Route: 065
  2. PREPOPIK [Suspect]
     Active Substance: ANHYDROUS CITRIC ACID\MAGNESIUM OXIDE\SODIUM PICOSULFATE
     Indication: BOWEL PREPARATION
     Dosage: 2 SACHETS, SPLIT DOSE REGIMEN
     Route: 048
     Dates: start: 20171129, end: 20171130

REACTIONS (2)
  - Drug ineffective [Unknown]
  - Therapeutic response prolonged [Not Recovered/Not Resolved]

NARRATIVE: CASE EVENT DATE: 20171129
